FAERS Safety Report 5497085-0 (Version None)
Quarter: 2007Q4

REPORT INFORMATION
  Report Type: 
  Country: None (occurrence: None)
  Receive Date: 20071025
  Receipt Date: 20071016
  Transmission Date: 20080405
  Serious: Yes (Life-Threatening, Hospitalization)
  Sender: FDA-Public Use
  Company Number: JP-MERCK-0710USA00252

PATIENT
  Age: 65 Year
  Sex: Male

DRUGS (5)
  1. ZETIA [Suspect]
     Indication: TYPE IIA HYPERLIPIDAEMIA
     Route: 048
     Dates: start: 20070615
  2. ASPIRIN [Concomitant]
     Route: 065
     Dates: start: 20021113
  3. VASOTEC [Concomitant]
     Route: 048
     Dates: start: 20021227
  4. WARFARIN POTASSIUM [Concomitant]
     Route: 065
     Dates: start: 20050112
  5. PROBUCOL [Concomitant]
     Route: 065
     Dates: start: 20070512

REACTIONS (2)
  - GASTROENTERITIS [None]
  - MECHANICAL ILEUS [None]
